FAERS Safety Report 6443807-1 (Version None)
Quarter: 2009Q4

REPORT INFORMATION
  Report Type: 
  Country: None (occurrence: None)
  Receive Date: 20091117
  Receipt Date: 20091104
  Transmission Date: 20100525
  Serious: Yes (Hospitalization)
  Sender: FDA-Public Use
  Company Number: PHHY2009IE28542

PATIENT
  Sex: Male

DRUGS (9)
  1. CLOZARIL [Suspect]
     Indication: SCHIZOPHRENIA
     Dosage: 375 MG, QD
     Route: 048
     Dates: start: 20090619
  2. CLONAZEPAM [Concomitant]
     Indication: AGITATION
     Dosage: 0.5 MG, TID
     Route: 048
  3. GALANTAMINE HYDROBROMIDE [Concomitant]
     Indication: MEMORY IMPAIRMENT
     Dosage: 24 MG, QD
     Route: 048
  4. MEMANTINE HCL [Concomitant]
     Indication: MEMORY IMPAIRMENT
     Dosage: 10 MG, BID
     Route: 048
  5. CALCICHEW D3 [Concomitant]
     Dosage: UNK
     Route: 048
  6. MIRTAZAPINE [Concomitant]
     Indication: DEPRESSION
     Dosage: 45 MG, QHS
     Route: 048
  7. EPILIM [Concomitant]
     Indication: AFFECTIVE DISORDER
     Dosage: 800 MG, BID
     Route: 048
  8. AMISULPRIDE [Concomitant]
     Indication: AFFECTIVE DISORDER
     Dosage: 100 MG, QHS
     Route: 048
  9. TRAZODONE HCL [Concomitant]
     Indication: AFFECTIVE DISORDER
     Dosage: 150 MG, QHS

REACTIONS (13)
  - ASTHENIA [None]
  - BLOOD CREATINE PHOSPHOKINASE INCREASED [None]
  - CHILLS [None]
  - CREPITATIONS [None]
  - DEPRESSED LEVEL OF CONSCIOUSNESS [None]
  - HYPOTENSION [None]
  - LOWER RESPIRATORY TRACT INFECTION [None]
  - PLATELET COUNT DECREASED [None]
  - PNEUMONIA [None]
  - PYREXIA [None]
  - RALES [None]
  - SEPSIS [None]
  - URINARY TRACT INFECTION [None]
